FAERS Safety Report 17987923 (Version 1)
Quarter: 2020Q3

REPORT INFORMATION
  Report Type: Spontaneous
  Country: US (occurrence: US)
  Receive Date: 20200706
  Receipt Date: 20200706
  Transmission Date: 20201103
  Serious: No
  Sender: FDA-Public Use
  Company Number: None

PATIENT
  Age: 66 Year
  Sex: Female
  Weight: 51.26 kg

DRUGS (17)
  1. GABAPENTIN. [Concomitant]
     Active Substance: GABAPENTIN
  2. MIRTAZAPINE. [Concomitant]
     Active Substance: MIRTAZAPINE
  3. OXYCODONE [Concomitant]
     Active Substance: OXYCODONE
  4. PROMETHAZINE [Concomitant]
     Active Substance: PROMETHAZINE HYDROCHLORIDE
  5. ENOXAPARIN [Concomitant]
     Active Substance: ENOXAPARIN
  6. IMODIUM A?D [Concomitant]
     Active Substance: LOPERAMIDE HYDROCHLORIDE
  7. MECLIZINE [Concomitant]
     Active Substance: MECLIZINE HYDROCHLORIDE
  8. ZOFRAN [Concomitant]
     Active Substance: ONDANSETRON HYDROCHLORIDE
  9. LEVOTHYROXINE. [Concomitant]
     Active Substance: LEVOTHYROXINE
  10. PROVENTIL HFA [Concomitant]
     Active Substance: ALBUTEROL SULFATE
  11. ALBUTEROL HFA [Concomitant]
     Active Substance: ALBUTEROL SULFATE
  12. PROCHLORPERAZINE. [Concomitant]
     Active Substance: PROCHLORPERAZINE
  13. VESICARE [Concomitant]
     Active Substance: SOLIFENACIN SUCCINATE
  14. LOMOTIL [Concomitant]
     Active Substance: ATROPINE SULFATE\DIPHENOXYLATE HYDROCHLORIDE
  15. EFFEXOR XR [Concomitant]
     Active Substance: VENLAFAXINE HYDROCHLORIDE
  16. CEPHALEXIN. [Concomitant]
     Active Substance: CEPHALEXIN
  17. BRAFTOVI [Suspect]
     Active Substance: ENCORAFENIB
     Indication: COLON CANCER
     Route: 048
     Dates: start: 20200602, end: 20200706

REACTIONS (4)
  - Urinary tract infection [None]
  - Dysuria [None]
  - Pneumonia [None]
  - Malaise [None]

NARRATIVE: CASE EVENT DATE: 20200706
